FAERS Safety Report 10367070 (Version 5)
Quarter: 2015Q3

REPORT INFORMATION
  Report Type: Report from Study
  Country: CA (occurrence: CA)
  Receive Date: 20140807
  Receipt Date: 20150707
  Transmission Date: 20151125
  Serious: Yes (Hospitalization, Other)
  Sender: FDA-Public Use
  Company Number: CA-ROCHE-1208587

PATIENT
  Age: 58 Year
  Sex: Female
  Weight: 85 kg

DRUGS (8)
  1. LYRICA [Concomitant]
     Active Substance: PREGABALIN
  2. NEXIUM [Concomitant]
     Active Substance: ESOMEPRAZOLE MAGNESIUM
  3. AMITRIPTYLINE [Concomitant]
     Active Substance: AMITRIPTYLINE
  4. ACTONEL [Concomitant]
     Active Substance: RISEDRONATE SODIUM
  5. ACTEMRA [Suspect]
     Active Substance: TOCILIZUMAB
     Indication: RHEUMATOID ARTHRITIS
     Route: 042
     Dates: start: 20121121
  6. PREDNISONE. [Concomitant]
     Active Substance: PREDNISONE
  7. NAPROSYN [Suspect]
     Active Substance: NAPROXEN
     Indication: PRODUCT USED FOR UNKNOWN INDICATION
     Route: 065
  8. ARAVA [Concomitant]
     Active Substance: LEFLUNOMIDE

REACTIONS (7)
  - Ill-defined disorder [Unknown]
  - Arthropathy [Unknown]
  - Weight increased [Unknown]
  - Localised infection [Recovered/Resolved]
  - Post procedural infection [Recovered/Resolved]
  - Localised infection [Unknown]
  - Arthralgia [Not Recovered/Not Resolved]

NARRATIVE: CASE EVENT DATE: 201303
